FAERS Safety Report 8475638-5 (Version None)
Quarter: 2012Q2

REPORT INFORMATION
  Report Type: 
  Country: None (occurrence: None)
  Receive Date: 20120628
  Receipt Date: 20120614
  Transmission Date: 20120825
  Serious: Yes (Other)
  Sender: FDA-Public Use
  Company Number: US-ARROW GEN-2012-10413

PATIENT
  Sex: Male
  Weight: 88 kg

DRUGS (1)
  1. FENTANYL-100 [Suspect]
     Indication: PAIN
     Dosage: ONE PATCH EVERY 48 HOURS
     Route: 062
     Dates: start: 20120416, end: 20120516

REACTIONS (4)
  - DYSPNOEA [None]
  - DEPRESSED LEVEL OF CONSCIOUSNESS [None]
  - UNRESPONSIVE TO STIMULI [None]
  - HYPOVENTILATION [None]
